FAERS Safety Report 8216404-5 (Version None)
Quarter: 2012Q1

REPORT INFORMATION
  Report Type: 
  Country: None (occurrence: None)
  Receive Date: 20120316
  Receipt Date: 20120314
  Transmission Date: 20120608
  Serious: Yes (Death, Other)
  Sender: FDA-Public Use
  Company Number: PHHY2012DO022971

PATIENT
  Age: 53 Year
  Sex: Female

DRUGS (3)
  1. ATENOLOL [Concomitant]
     Dosage: UNK UKN, UNK
  2. INSULIN [Concomitant]
     Dosage: UNK UKN, UNK
  3. EXFORGE [Suspect]
     Indication: HYPERTENSION
     Dosage: (160/5 MG), UNK

REACTIONS (2)
  - DIABETES MELLITUS [None]
  - RENAL DISORDER [None]
